FAERS Safety Report 7056691 (Version 6)
Quarter: 2018Q4

REPORT INFORMATION
  Report Type: Spontaneous
  Country: JP (occurrence: JP)
  Receive Date: 20090721
  Receipt Date: 20181220
  Transmission Date: 20190205
  Serious: Yes (Death, Hospitalization, Other)
  Sender: FDA-Public Use
  Company Number: PHHY2009JP29824

PATIENT
  Age: 31 Year
  Sex: Female
  Weight: 47 kg

DRUGS (10)
  1. MERCAZOLE [Concomitant]
     Active Substance: CARBIMAZOLE
     Indication: HYPERTHYROIDISM
     Dosage: 15 MG, UNK
     Route: 048
     Dates: start: 20040914, end: 20090708
  2. LASIX [Concomitant]
     Active Substance: FUROSEMIDE
     Dosage: 20 MG, UNK
     Route: 042
     Dates: start: 20090708
  3. POTASSIUM IODIDE. [Concomitant]
     Active Substance: POTASSIUM IODIDE
     Indication: HYPERTHYROIDISM
     Dosage: 50 MG, UNK
     Route: 048
     Dates: start: 20040921, end: 20090708
  4. LASIX [Concomitant]
     Active Substance: FUROSEMIDE
     Indication: RIGHT VENTRICULAR FAILURE
     Dosage: 20 MG, UNK
     Route: 048
     Dates: start: 20040731, end: 20090708
  5. GLIVEC [Suspect]
     Active Substance: IMATINIB MESYLATE
     Indication: CARDIAC FAILURE
     Dosage: 100 MG, BID
     Route: 048
     Dates: start: 20081208, end: 20090708
  6. ALDACTONE [Concomitant]
     Active Substance: SPIRONOLACTONE
     Indication: RIGHT VENTRICULAR FAILURE
     Dosage: 25 MG, UNK
     Route: 048
     Dates: start: 20040731, end: 20090708
  7. GLIVEC [Suspect]
     Active Substance: IMATINIB MESYLATE
     Indication: PULMONARY HYPERTENSION
     Dosage: 100 MG, QD
     Route: 048
  8. FLOLAN [Suspect]
     Active Substance: EPOPROSTENOL SODIUM
     Indication: PULMONARY HYPERTENSION
     Dosage: UNK
     Route: 042
     Dates: start: 20030502, end: 20090710
  9. TRACLEER [Suspect]
     Active Substance: BOSENTAN
     Indication: PULMONARY HYPERTENSION
     Dosage: 250 MG, UNK
     Route: 048
     Dates: start: 20050929, end: 20090708
  10. REVATIO [Suspect]
     Active Substance: SILDENAFIL CITRATE
     Indication: PULMONARY HYPERTENSION
     Dosage: 45 MG, QD
     Route: 048
     Dates: start: 20030512, end: 20090708

REACTIONS (19)
  - Pulmonary haemorrhage [Fatal]
  - Cardiac arrest [Fatal]
  - Cardiomegaly [Unknown]
  - Endometrial atrophy [Unknown]
  - Right ventricular failure [Fatal]
  - Respiratory arrest [Unknown]
  - Blood pressure decreased [Unknown]
  - Nausea [Not Recovered/Not Resolved]
  - Haemoptysis [Fatal]
  - Urine output decreased [Fatal]
  - Heart rate increased [Unknown]
  - Restlessness [Unknown]
  - Somnolence [Unknown]
  - Hepatic congestion [Fatal]
  - Pulmonary hypertension [Fatal]
  - Vomiting [Not Recovered/Not Resolved]
  - Hyperthyroidism [Fatal]
  - Renal disorder [Fatal]
  - Dyspnoea [Unknown]

NARRATIVE: CASE EVENT DATE: 20090629
